FAERS Safety Report 13181671 (Version 2)
Quarter: 2017Q1

REPORT INFORMATION
  Report Type: Spontaneous
  Country: US (occurrence: US)
  Receive Date: 20170202
  Receipt Date: 20170209
  Transmission Date: 20170428
  Serious: Yes (Other)
  Sender: FDA-Public Use
  Company Number: US-ALLERGAN-1632109

PATIENT
  Age: 68 Year
  Sex: Female
  Weight: 46.7 kg

DRUGS (2)
  1. ALORA [Suspect]
     Active Substance: ESTRADIOL
     Indication: HORMONE REPLACEMENT THERAPY
     Dosage: 2 DF, Q WEEK
     Route: 062
     Dates: start: 1997
  2. ALORA [Suspect]
     Active Substance: ESTRADIOL
     Dosage: 2 DF, Q WEEK
     Route: 062

REACTIONS (9)
  - Asthma [Unknown]
  - Nausea [Unknown]
  - Drug ineffective [Unknown]
  - Migraine [Unknown]
  - Product physical issue [Unknown]
  - Insomnia [Not Recovered/Not Resolved]
  - Feeling jittery [Not Recovered/Not Resolved]
  - Dysmenorrhoea [Unknown]
  - Malaise [Unknown]

NARRATIVE: CASE EVENT DATE: 2013
